FAERS Safety Report 17586734 (Version 1)
Quarter: 2020Q1

REPORT INFORMATION
  Report Type: Report from Study
  Country: NL (occurrence: NL)
  Receive Date: 20200326
  Receipt Date: 20200326
  Transmission Date: 20200409
  Serious: Yes (Other)
  Sender: FDA-Public Use
  Company Number: NL-EMD SERONO-9132608

PATIENT
  Age: 39 Year
  Sex: Female

DRUGS (4)
  1. MAVENCLAD [Suspect]
     Active Substance: CLADRIBINE
     Indication: RELAPSING-REMITTING MULTIPLE SCLEROSIS
     Dosage: YEAR ONE WEEK ONE THERAPY: TWO TABLET ON DAY 1 AND ONE TABLET ON DAYS 2 TO 5.
     Route: 048
  2. MAVENCLAD [Suspect]
     Active Substance: CLADRIBINE
     Dosage: YEAR TWO WEEK TWO THERAPY: TWO TABLET ON DAY 1 AND ONE TABLET ON DAYS 2 TO 5.
     Route: 048
     Dates: start: 20191014
  3. MAVENCLAD [Suspect]
     Active Substance: CLADRIBINE
     Dosage: YEAR TWO WEEK ONE THERAPY: TWO TABLET ON DAY 1 AND ONE TABLET ON DAYS 2 TO 5.
     Route: 048
  4. MAVENCLAD [Suspect]
     Active Substance: CLADRIBINE
     Dosage: YEAR ONE WEEK TWO THERAPY: TWO TABLET ON DAY 1 AND ONE TABLET ON DAYS 2 TO 5.
     Route: 048

REACTIONS (4)
  - Cervical dysplasia [Unknown]
  - Oral herpes [Unknown]
  - Anogenital warts [Recovered/Resolved]
  - White blood cell count decreased [Unknown]

NARRATIVE: CASE EVENT DATE: 201912
